FAERS Safety Report 6903242-6 (Version None)
Quarter: 2010Q3

REPORT INFORMATION
  Report Type: 
  Country: None (occurrence: None)
  Receive Date: 20100803
  Receipt Date: 20080904
  Transmission Date: 20110219
  Serious: No
  Sender: FDA-Public Use
  Company Number: US-PFIZER INC-2008074115

PATIENT
  Sex: Male
  Weight: 84.1 kg

DRUGS (6)
  1. LYRICA [Suspect]
     Indication: SPINAL CORD INJURY
     Dates: start: 20080701
  2. LYRICA [Suspect]
     Indication: NEURALGIA
  3. ALBUTEROL [Concomitant]
  4. MACROBID [Concomitant]
  5. CARBAMAZEPINE [Concomitant]
  6. BACLOFEN [Concomitant]

REACTIONS (1)
  - DRUG EFFECT DECREASED [None]
